FAERS Safety Report 9604101 (Version 1)
Quarter: 2013Q4

REPORT INFORMATION
  Report Type: Spontaneous
  Country: US (occurrence: US)
  Receive Date: 20131008
  Receipt Date: 20131008
  Transmission Date: 20140711
  Serious: Yes (Other)
  Sender: FDA-Public Use
  Company Number: US-SUN PHARMACEUTICAL INDUSTRIES LTD-2013SUN04796

PATIENT
  Age: 71 Year
  Sex: Female
  Weight: 74 kg

DRUGS (5)
  1. FELODIPINE EXTENDED-RELEASE TABLETS, 2.5 MG [Suspect]
     Indication: PRODUCT USED FOR UNKNOWN INDICATION
     Route: 065
  2. LEVOTHYROXINE [Suspect]
     Indication: PRODUCT USED FOR UNKNOWN INDICATION
     Route: 065
  3. DEXMEDETOMIDINE [Suspect]
     Indication: ANAESTHESIA
     Dosage: 0.42MCG/KG/H
     Route: 065
  4. DEXMEDETOMIDINE [Suspect]
     Dosage: 0.3 MCG/KG/H
     Route: 065
  5. ARIPIPRAZOLE [Concomitant]

REACTIONS (2)
  - Hypernatraemia [Recovered/Resolved]
  - Polyuria [Recovered/Resolved]
